FAERS Safety Report 8015921-0 (Version None)
Quarter: 2011Q4

REPORT INFORMATION
  Report Type: 
  Country: None (occurrence: None)
  Receive Date: 20111230
  Receipt Date: 20111219
  Transmission Date: 20120403
  Serious: Yes (Disabling)
  Sender: FDA-Public Use
  Company Number: FR-NOVOPROD-341758

PATIENT

DRUGS (6)
  1. ASPIRIN [Concomitant]
     Dosage: 75 MG, QD
     Route: 048
     Dates: start: 20100301
  2. BISOPROLOL [Concomitant]
     Indication: HYPERTENSION
     Dosage: 15 MG, QD
     Route: 048
     Dates: start: 20040101
  3. SIMVASTATIN [Concomitant]
     Dosage: 20 MG, QD
     Route: 048
     Dates: start: 20060101
  4. VICTOZA [Suspect]
     Indication: TYPE 2 DIABETES MELLITUS
     Dosage: 0.6 MG, BID
     Route: 058
     Dates: start: 20110131, end: 20110725
  5. ESIDRIX [Concomitant]
     Dosage: 25 MG, QD
     Route: 048
  6. METFORMIN HCL [Concomitant]
     Dosage: 700 MG, QD
     Route: 048
     Dates: start: 20100901

REACTIONS (6)
  - WEIGHT DECREASED [None]
  - ABDOMINAL PAIN [None]
  - ASTHENIA [None]
  - NAUSEA [None]
  - VOMITING [None]
  - DECREASED APPETITE [None]
